FAERS Safety Report 5656727-7 (Version None)
Quarter: 2008Q1

REPORT INFORMATION
  Report Type: 
  Country: None (occurrence: None)
  Receive Date: 20080306
  Receipt Date: 20080306
  Transmission Date: 20080703
  Serious: Yes (Life-Threatening, Disabling)
  Sender: FDA-Public Use
  Company Number: None

PATIENT
  Sex: Female
  Weight: 63.5036 kg

DRUGS (2)
  1. ENBREL [Suspect]
     Indication: RHEUMATOID ARTHRITIS
     Dosage: 50 MG 1 WEEKLY SYRINGE 25 MG 2 X WEEKLY SYRINGE
     Dates: start: 20041001, end: 20050101
  2. ENBREL [Suspect]
     Indication: RHEUMATOID ARTHRITIS
     Dosage: 50 MG 1 WEEKLY SYRINGE 25 MG 2 X WEEKLY SYRINGE
     Dates: start: 20051001, end: 20060101

REACTIONS (1)
  - AMYOTROPHIC LATERAL SCLEROSIS [None]
